FAERS Safety Report 11668537 (Version 1)
Quarter: 2015Q4

REPORT INFORMATION
  Report Type: Spontaneous
  Country: CA (occurrence: CA)
  Receive Date: 20151027
  Receipt Date: 20151027
  Transmission Date: 20160304
  Serious: Yes (Hospitalization)
  Sender: FDA-Public Use
  Company Number: CA-IMPAX LABORATORIES, INC-2015-IPXL-01033

PATIENT
  Age: 24 Year
  Sex: Female

DRUGS (9)
  1. NICOTINE. [Concomitant]
     Active Substance: NICOTINE
     Indication: SUBSTANCE USE
     Dosage: UNK, DAILY
     Route: 065
  2. LITHIUM. [Concomitant]
     Active Substance: LITHIUM
     Indication: BIPOLAR DISORDER
     Dosage: 900 MG, DAILY
     Route: 065
  3. CLONAZEPAM. [Concomitant]
     Active Substance: CLONAZEPAM
     Indication: PRODUCT USED FOR UNKNOWN INDICATION
     Dosage: 1 MG, 3 /DAY (TAKING UP TO 10 MG DAILY)
     Route: 065
  4. BUPROPION HYDROCHLORIDE SR [Suspect]
     Active Substance: BUPROPION HYDROCHLORIDE
     Indication: DRUG ABUSE
     Dosage: 300 MG, EVERY 1 TO 2 HOURS (1500 TO 3000 MG DAILY)
     Route: 013
  5. OLANZAPINE. [Concomitant]
     Active Substance: OLANZAPINE
     Indication: PRODUCT USED FOR UNKNOWN INDICATION
     Dosage: 10 MG, DAILY
     Route: 065
  6. CANNABIS [Concomitant]
     Active Substance: CANNABIS SATIVA SUBSP. INDICA TOP
     Indication: SUBSTANCE ABUSE
     Dosage: UNK, DAILY
     Route: 065
  7. CAFFEINE. [Concomitant]
     Active Substance: CAFFEINE
     Indication: SUBSTANCE USE
     Dosage: UNK, DAILY
  8. BUPROPION HYDROCHLORIDE SR [Suspect]
     Active Substance: BUPROPION HYDROCHLORIDE
     Dosage: 7 INJECTIONS OF 300 MG
     Route: 013
  9. CYMBALTA [Concomitant]
     Active Substance: DULOXETINE HYDROCHLORIDE
     Indication: BIPOLAR DISORDER
     Dosage: 90 MG, DAILY
     Route: 065

REACTIONS (8)
  - Cellulitis [Recovered/Resolved]
  - Compartment syndrome [Recovered/Resolved]
  - Intentional overdose [Unknown]
  - Drug abuse [Unknown]
  - Intentional product use issue [Unknown]
  - Blood pressure increased [Unknown]
  - Heart rate increased [Unknown]
  - Arterial occlusive disease [Recovered/Resolved]
